FAERS Safety Report 21556646 (Version 1)
Quarter: 2022Q4

REPORT INFORMATION
  Report Type: Spontaneous
  Country: KR (occurrence: KR)
  Receive Date: 20221104
  Receipt Date: 20221104
  Transmission Date: 20230113
  Serious: Yes (Other)
  Sender: FDA-Public Use
  Company Number: KR-PFIZER INC-202201271757

PATIENT
  Age: 64 Year
  Sex: Female

DRUGS (1)
  1. PAXLOVID [Suspect]
     Active Substance: NIRMATRELVIR\RITONAVIR
     Indication: COVID-19 treatment
     Dosage: UNK
     Route: 048
     Dates: start: 20221031, end: 20221101

REACTIONS (10)
  - Laryngeal oedema [Unknown]
  - Headache [Unknown]
  - Oropharyngeal pain [Unknown]
  - Erythema [Unknown]
  - Feeling hot [Unknown]
  - Peripheral swelling [Unknown]
  - Hypoaesthesia [Unknown]
  - Dizziness [Unknown]
  - Decreased appetite [Unknown]
  - Drug hypersensitivity [Unknown]

NARRATIVE: CASE EVENT DATE: 20221101
